FAERS Safety Report 9350238 (Version 1)
Quarter: 2013Q2

REPORT INFORMATION
  Report Type: Spontaneous
  Country: DE (occurrence: DE)
  Receive Date: 20130617
  Receipt Date: 20130617
  Transmission Date: 20140414
  Serious: Yes (Other)
  Sender: FDA-Public Use
  Company Number: DE-RANBAXY-2013R1-70151

PATIENT
  Age: 25 Year
  Sex: Female
  Weight: 70 kg

DRUGS (4)
  1. TOPIRAMATE [Suspect]
     Indication: EPILEPSY
     Dosage: 50 MG BID
     Route: 048
     Dates: start: 20130228, end: 20130509
  2. EUTHYROX [Concomitant]
     Indication: HYPERTHYROIDISM
     Dosage: 50MCG/DAY
     Route: 048
     Dates: start: 20130228, end: 20130509
  3. UTROGEST [Concomitant]
     Indication: PROPHYLAXIS OF ABORTION
     Dosage: 100 MG/DAY
     Route: 048
  4. FOL PLUS [Concomitant]
     Indication: PROPHYLAXIS OF NEURAL TUBE DEFECT
     Dosage: 0.4MG/DAY
     Route: 048
     Dates: start: 20130228, end: 20130509

REACTIONS (1)
  - Abortion missed [Recovered/Resolved]
